FAERS Safety Report 17414914 (Version 3)
Quarter: 2020Q1

REPORT INFORMATION
  Report Type: Spontaneous
  Country: US (occurrence: US)
  Receive Date: 20200213
  Receipt Date: 20200313
  Transmission Date: 20200409
  Serious: No
  Sender: FDA-Public Use
  Company Number: US-JNJFOC-20200217266

PATIENT

DRUGS (4)
  1. TOPAMAX [Suspect]
     Active Substance: TOPIRAMATE
     Indication: COMPULSIONS
  2. TOPAMAX [Suspect]
     Active Substance: TOPIRAMATE
     Indication: BINGE EATING
  3. TOPAMAX [Suspect]
     Active Substance: TOPIRAMATE
     Indication: OBESITY
     Route: 048
     Dates: start: 201503
  4. TOPAMAX [Suspect]
     Active Substance: TOPIRAMATE
     Indication: AFFECTIVE DISORDER

REACTIONS (9)
  - Osteoporosis [Unknown]
  - Weight decreased [Unknown]
  - Adverse drug reaction [Unknown]
  - Collagen disorder [Unknown]
  - Alopecia [Unknown]
  - Product use in unapproved indication [Unknown]
  - Off label use [Unknown]
  - Fatigue [Recovered/Resolved]
  - Feeling abnormal [Recovered/Resolved]
